FAERS Safety Report 7415691-0 (Version None)
Quarter: 2011Q2

REPORT INFORMATION
  Report Type: 
  Country: None (occurrence: None)
  Receive Date: 20110414
  Receipt Date: 20110405
  Transmission Date: 20111010
  Serious: Yes (Hospitalization, Other)
  Sender: FDA-Public Use
  Company Number: FR-MERCK-1104FRA00049

PATIENT
  Age: 69 Year
  Sex: Male
  Weight: 94 kg

DRUGS (4)
  1. JANUVIA [Suspect]
     Indication: TYPE 2 DIABETES MELLITUS
     Route: 048
     Dates: start: 20100114
  2. METFORMIN [Suspect]
     Route: 048
     Dates: start: 20091021, end: 20110128
  3. REPAGLINIDE [Concomitant]
     Indication: TYPE 2 DIABETES MELLITUS
     Route: 048
     Dates: start: 20110128
  4. METFORMIN [Suspect]
     Indication: TYPE 2 DIABETES MELLITUS
     Route: 048
     Dates: start: 20090929, end: 20091021

REACTIONS (3)
  - EXTREMITY NECROSIS [None]
  - TOE AMPUTATION [None]
  - RENAL FAILURE ACUTE [None]
